FAERS Safety Report 15932005 (Version 1)
Quarter: 2019Q1

REPORT INFORMATION
  Report Type: Spontaneous
  Country: IT (occurrence: IT)
  Receive Date: 20190207
  Receipt Date: 20190207
  Transmission Date: 20190417
  Serious: Yes (Other)
  Sender: FDA-Public Use
  Company Number: IT-AMGEN-ITASP2018183649

PATIENT
  Age: 58 Year
  Sex: Female

DRUGS (4)
  1. CALCIFEDIOL [Concomitant]
     Active Substance: CALCIFEDIOL
     Dosage: 0.25 MUG, QOD
  2. CHOLECALCIFEROL [Concomitant]
     Active Substance: CHOLECALCIFEROL
     Dosage: 25000 UNK, Q2WK
  3. CALCIUM [Concomitant]
     Active Substance: CALCIUM
     Dosage: 450 UNK, QD
  4. PROLIA [Suspect]
     Active Substance: DENOSUMAB
     Indication: OSTEOPOROSIS POSTMENOPAUSAL
     Dosage: 60 MG, Q6MO
     Route: 065
     Dates: start: 2016

REACTIONS (2)
  - Therapy non-responder [Recovering/Resolving]
  - Spinal fracture [Unknown]
